FAERS Safety Report 7096653-2 (Version None)
Quarter: 2010Q4

REPORT INFORMATION
  Report Type: 
  Country: None (occurrence: None)
  Receive Date: 20101110
  Receipt Date: 20101110
  Transmission Date: 20110411
  Serious: Yes (Other)
  Sender: FDA-Public Use
  Company Number: None

PATIENT
  Age: 72 Year
  Sex: Female
  Weight: 67.586 kg

DRUGS (1)
  1. MYCAMINE [Suspect]
     Indication: FUNGAL INFECTION
     Dosage: 100MG IV 1 PER DAY INTRA-ARTERIAL
     Route: 013
     Dates: start: 20101105, end: 20101105

REACTIONS (2)
  - BACK PAIN [None]
  - GAIT DISTURBANCE [None]
